FAERS Safety Report 15634336 (Version 1)
Quarter: 2018Q4

REPORT INFORMATION
  Report Type: Spontaneous
  Country: US (occurrence: US)
  Receive Date: 20181119
  Receipt Date: 20181119
  Transmission Date: 20190205
  Serious: Yes (Life-Threatening)
  Sender: FDA-Public Use
  Company Number: None

PATIENT
  Age: 36 Year
  Sex: Male
  Weight: 69.75 kg

DRUGS (3)
  1. ACCORD PHARMACEUTICALS CLON1 AZEPAM 1MG [Suspect]
     Active Substance: CLONAZEPAM
     Indication: ANXIETY
     Dosage: ?          QUANTITY:90 TABLET(S);?
     Route: 048
     Dates: start: 20181027, end: 20181107
  2. ACCORD PHARMACEUTICALS CLON1 AZEPAM 1MG [Suspect]
     Active Substance: CLONAZEPAM
     Indication: PANIC DISORDER
     Dosage: ?          QUANTITY:90 TABLET(S);?
     Route: 048
     Dates: start: 20181027, end: 20181107
  3. ACCORD PHARMACEUTICALS CLON1 AZEPAM 1MG [Suspect]
     Active Substance: CLONAZEPAM
     Indication: POST-TRAUMATIC STRESS DISORDER
     Dosage: ?          QUANTITY:90 TABLET(S);?
     Route: 048
     Dates: start: 20181027, end: 20181107

REACTIONS (20)
  - Nausea [None]
  - Insomnia [None]
  - Anxiety [None]
  - Major depression [None]
  - Product complaint [None]
  - Asthenia [None]
  - Therapeutic response changed [None]
  - Manufacturing materials issue [None]
  - Irritability [None]
  - Migraine [None]
  - Drug hypersensitivity [None]
  - Heart rate irregular [None]
  - Panic attack [None]
  - Drug ineffective [None]
  - Feeling abnormal [None]
  - Chest pain [None]
  - Drug withdrawal syndrome [None]
  - Product substitution issue [None]
  - Rash [None]
  - Condition aggravated [None]

NARRATIVE: CASE EVENT DATE: 20181027
